FAERS Safety Report 16361546 (Version 8)
Quarter: 2020Q1

REPORT INFORMATION
  Report Type: Spontaneous
  Country: US (occurrence: US)
  Receive Date: 20190528
  Receipt Date: 20200117
  Transmission Date: 20200409
  Serious: Yes (Other)
  Sender: FDA-Public Use
  Company Number: US-PFIZER INC-2019221778

PATIENT
  Age: 56 Year
  Sex: Male

DRUGS (3)
  1. XELJANZ XR [Suspect]
     Active Substance: TOFACITINIB CITRATE
     Dosage: 11 MG, 1X/DAY
     Route: 048
     Dates: start: 20190328, end: 20200114
  2. XELJANZ XR [Suspect]
     Active Substance: TOFACITINIB CITRATE
     Indication: RHEUMATOID ARTHRITIS
     Dosage: 11 MG, 1X/DAY
     Dates: start: 20190321
  3. XELJANZ XR [Suspect]
     Active Substance: TOFACITINIB CITRATE
     Dosage: 11 MG, DAILY
     Dates: start: 20190328, end: 2019

REACTIONS (11)
  - Discharge [Unknown]
  - Paraesthesia [Unknown]
  - Blood blister [Unknown]
  - Hepatitis [Unknown]
  - Wrong technique in product usage process [Unknown]
  - Therapeutic product effect incomplete [Unknown]
  - Hypoaesthesia [Unknown]
  - Pruritus [Unknown]
  - Pancreatitis [Unknown]
  - Skin exfoliation [Unknown]
  - Hepatic enzyme increased [Unknown]

NARRATIVE: CASE EVENT DATE: 2019
